FAERS Safety Report 14412759 (Version 1)
Quarter: 2018Q1

REPORT INFORMATION
  Report Type: Spontaneous
  Country: US (occurrence: US)
  Receive Date: 20180119
  Receipt Date: 20180119
  Transmission Date: 20180509
  Serious: Yes (Hospitalization)
  Sender: FDA-Public Use
  Company Number: None

PATIENT
  Age: 71 Year
  Sex: Female
  Weight: 95.6 kg

DRUGS (11)
  1. CARDIZEM [Concomitant]
     Active Substance: DILTIAZEM HYDROCHLORIDE
  2. VITAMIN D [Concomitant]
     Active Substance: CHOLECALCIFEROL
  3. LOPRESSOR [Concomitant]
     Active Substance: METOPROLOL TARTRATE
  4. HUMULIN NOS [Concomitant]
     Active Substance: INSULIN HUMAN
  5. LINZESS [Concomitant]
     Active Substance: LINACLOTIDE
  6. ELIQUIS [Suspect]
     Active Substance: APIXABAN
     Indication: ATRIAL FIBRILLATION
     Dosage: DATES OF USE - RECENT
     Route: 048
  7. ASPIRIN. [Suspect]
     Active Substance: ASPIRIN
     Indication: ATRIAL FIBRILLATION
     Dosage: DATES OF USE - CHRONIC
     Route: 048
  8. LASIX [Concomitant]
     Active Substance: FUROSEMIDE
  9. SYNTHROID [Concomitant]
     Active Substance: LEVOTHYROXINE SODIUM
  10. WELLBUTRIN [Concomitant]
     Active Substance: BUPROPION HYDROCHLORIDE
  11. FOLVITE [Concomitant]
     Active Substance: FOLIC ACID

REACTIONS (5)
  - Cardiac arrest [None]
  - Intra-abdominal haemorrhage [None]
  - Shock haemorrhagic [None]
  - Pulseless electrical activity [None]
  - Peritoneal haemorrhage [None]

NARRATIVE: CASE EVENT DATE: 20170804
